FAERS Safety Report 5043626-7 (Version None)
Quarter: 2006Q3

REPORT INFORMATION
  Report Type: 
  Country: None (occurrence: None)
  Receive Date: 20060706
  Receipt Date: 20060626
  Transmission Date: 20061208
  Serious: Yes (Hospitalization)
  Sender: FDA-Public Use
  Company Number: PHRM2006FR01914

PATIENT
  Sex: Female

DRUGS (3)
  1. TEGRETOL [Suspect]
     Indication: EPILEPSY
     Dosage: 200 MG/DAY
     Route: 048
  2. DEPAKENE [Suspect]
     Indication: EPILEPSY
     Dosage: 750 MG/DAY
     Route: 048
  3. RIVOTRIL [Concomitant]
     Indication: EPILEPSY
     Dosage: 2 MG/DAY
     Route: 048

REACTIONS (4)
  - ABORTION INDUCED [None]
  - DRUG EXPOSURE DURING PREGNANCY [None]
  - TRISOMY 21 [None]
  - VENTRICULAR HYPOPLASIA [None]
